FAERS Safety Report 5588186-7 (Version None)
Quarter: 2008Q1

REPORT INFORMATION
  Report Type: 
  Country: None (occurrence: None)
  Receive Date: 20080108
  Receipt Date: 20080104
  Transmission Date: 20080703
  Serious: Yes (Death, Hospitalization)
  Sender: FDA-Public Use
  Company Number: 2007SP024661

PATIENT
  Age: 75 Year
  Sex: Female

DRUGS (7)
  1. TEMOZOLOMIDE [Suspect]
     Indication: GLIOBLASTOMA MULTIFORME
     Dosage: 350 MG
     Dates: start: 20070917, end: 20071116
  2. DOXORUBICIN HCL [Suspect]
     Indication: GLIOBLASTOMA MULTIFORME
     Dosage: 69 MG;ONCE;IV
     Route: 042
     Dates: start: 20070917, end: 20071112
  3. DEXAMETHASONE TAB [Suspect]
     Indication: GLIOBLASTOMA MULTIFORME
     Dosage: 4 MG;QD;PO
     Route: 048
  4. KEPPRA [Concomitant]
  5. ATORVASTATIN [Concomitant]
  6. RABEPRAZOLE SODIUM [Concomitant]
  7. PERINDOPRIL [Concomitant]

REACTIONS (4)
  - COUGH [None]
  - FEBRILE NEUTROPENIA [None]
  - LYMPHOCYTE COUNT DECREASED [None]
  - PNEUMOCYSTIS JIROVECI PNEUMONIA [None]
